FAERS Safety Report 20887135 (Version 1)
Quarter: 2022Q2

REPORT INFORMATION
  Report Type: Report from Study
  Country: US (occurrence: US)
  Receive Date: 20220528
  Receipt Date: 20220528
  Transmission Date: 20220720
  Serious: Yes (Disabling, Other)
  Sender: FDA-Public Use
  Company Number: US-BRISTOL-MYERS SQUIBB COMPANY-2022-028042

PATIENT
  Age: 84 Year
  Sex: Male

DRUGS (1)
  1. BREYANZI [Suspect]
     Active Substance: LISOCABTAGENE MARALEUCEL
     Indication: Lymphoma
     Dosage: BREYANZI CAR T POST-CELL 1UNIT US.
     Route: 065

REACTIONS (4)
  - Confusional state [Unknown]
  - Small intestinal perforation [Not Recovered/Not Resolved]
  - Blood glucose increased [Unknown]
  - Pyrexia [Unknown]

NARRATIVE: CASE EVENT DATE: 20220318
